FAERS Safety Report 17521301 (Version 1)
Quarter: 2020Q1

REPORT INFORMATION
  Report Type: Spontaneous
  Country: US (occurrence: US)
  Receive Date: 20200310
  Receipt Date: 20200310
  Transmission Date: 20200409
  Serious: Yes (Hospitalization)
  Sender: FDA-Public Use
  Company Number: None

PATIENT
  Age: 58 Year
  Sex: Female

DRUGS (18)
  1. LUMIGAN [Concomitant]
     Active Substance: BIMATOPROST
  2. OMEPRAZOLE. [Concomitant]
     Active Substance: OMEPRAZOLE
  3. DIGOXIN. [Concomitant]
     Active Substance: DIGOXIN
  4. SINGULAIR [Concomitant]
     Active Substance: MONTELUKAST SODIUM
  5. VITAMIN D [Concomitant]
     Active Substance: VITAMIN D NOS
  6. FLAGYL [Concomitant]
     Active Substance: METRONIDAZOLE\METRONIDAZOLE HYDROCHLORIDE
  7. METFORMIN [Concomitant]
     Active Substance: METFORMIN HYDROCHLORIDE
  8. SILDENAFIL. [Suspect]
     Active Substance: SILDENAFIL
     Indication: PULMONARY ARTERIAL HYPERTENSION
     Route: 048
     Dates: start: 20150825
  9. FUROSEMIDE. [Concomitant]
     Active Substance: FUROSEMIDE
  10. OPSUMIT [Concomitant]
     Active Substance: MACITENTAN
  11. PROAIR HFA [Concomitant]
     Active Substance: ALBUTEROL SULFATE
  12. VALSARTAN. [Concomitant]
     Active Substance: VALSARTAN
  13. CEFTRIAXONE. [Concomitant]
     Active Substance: CEFTRIAXONE
  14. LORAZEPAM. [Concomitant]
     Active Substance: LORAZEPAM
  15. RESTASIS [Concomitant]
     Active Substance: CYCLOSPORINE
  16. SPIRONOLACT [Concomitant]
     Active Substance: SPIRONOLACTONE
  17. ACTIGALL [Concomitant]
     Active Substance: URSODIOL
  18. ALPRAZOLAM. [Concomitant]
     Active Substance: ALPRAZOLAM

REACTIONS (1)
  - Cardiac operation [None]
